FAERS Safety Report 12463965 (Version 2)
Quarter: 2016Q3

REPORT INFORMATION
  Report Type: Other
  Country: JP (occurrence: JP)
  Receive Date: 20160614
  Receipt Date: 20160728
  Transmission Date: 20161109
  Serious: Yes (Death, Hospitalization)
  Sender: FDA-Public Use
  Company Number: JP-ACTELION-A-CH2016-137327

PATIENT
  Age: 24 Year
  Sex: Male

DRUGS (10)
  1. POTASSIUM CHLORIDE. [Concomitant]
     Active Substance: POTASSIUM CHLORIDE
  2. EPOPROSTENOL ACT [Suspect]
     Active Substance: EPOPROSTENOL
     Dosage: 73 NG/KG, PER MIN
     Route: 042
     Dates: start: 201411
  3. SILDENAFIL. [Concomitant]
     Active Substance: SILDENAFIL
  4. WARFARIN [Concomitant]
     Active Substance: WARFARIN
  5. OXYGEN. [Concomitant]
     Active Substance: OXYGEN
  6. AMBRISENTAN [Concomitant]
     Active Substance: AMBRISENTAN
  7. EPOPROSTENOL ACT [Suspect]
     Active Substance: EPOPROSTENOL
     Indication: PULMONARY ARTERIAL HYPERTENSION
     Dosage: 95 NG/KG, PER MIN
     Route: 042
     Dates: start: 20150310, end: 20150408
  8. FUROSEMIDE. [Concomitant]
     Active Substance: FUROSEMIDE
  9. TOLVAPTAN [Concomitant]
     Active Substance: TOLVAPTAN
  10. EPLERENONE. [Concomitant]
     Active Substance: EPLERENONE

REACTIONS (5)
  - Respiratory failure [Fatal]
  - Cardiac failure [Fatal]
  - Hypoxia [Fatal]
  - Pulmonary arterial pressure increased [Unknown]
  - Platelet count decreased [Not Recovered/Not Resolved]

NARRATIVE: CASE EVENT DATE: 20150407
